FAERS Safety Report 7480639-X (Version None)
Quarter: 2011Q2

REPORT INFORMATION
  Report Type: 
  Country: None (occurrence: None)
  Receive Date: 20110516
  Receipt Date: 20110503
  Transmission Date: 20111010
  Serious: Yes (Death)
  Sender: FDA-Public Use
  Company Number: DE-JNJFOC-20100603911

PATIENT
  Age: 99 Year
  Sex: Female

DRUGS (13)
  1. DIAZEPAM [Concomitant]
     Indication: ILL-DEFINED DISORDER
     Route: 048
     Dates: start: 20091019, end: 20091020
  2. DIAZEPAM [Concomitant]
     Route: 048
     Dates: start: 20091031, end: 20091105
  3. LASIX [Suspect]
     Indication: PRODUCT USED FOR UNKNOWN INDICATION
     Route: 048
     Dates: end: 20091105
  4. ASPIRIN [Concomitant]
     Route: 048
     Dates: end: 20091105
  5. ZOLPIDEM [Concomitant]
     Route: 048
     Dates: end: 20091105
  6. HALDOL [Suspect]
     Route: 048
     Dates: start: 20091029, end: 20091102
  7. DIAZEPAM [Concomitant]
     Route: 048
     Dates: start: 20091030, end: 20091030
  8. DIAZEPAM [Concomitant]
     Route: 048
     Dates: start: 20091029, end: 20091029
  9. LISINOPRIL [Suspect]
     Indication: PRODUCT USED FOR UNKNOWN INDICATION
     Route: 048
     Dates: end: 20091105
  10. DIPIPERON [Suspect]
     Indication: ILL-DEFINED DISORDER
     Route: 048
     Dates: start: 20091104
  11. METOPROLOL SUCCINATE [Interacting]
     Indication: ILL-DEFINED DISORDER
     Route: 048
     Dates: end: 20091105
  12. HALDOL [Suspect]
     Indication: ILL-DEFINED DISORDER
     Route: 048
     Dates: start: 20091019, end: 20091028
  13. DIAZEPAM [Concomitant]
     Route: 048
     Dates: start: 20091021, end: 20091028

REACTIONS (4)
  - AKATHISIA [None]
  - DRUG INTERACTION [None]
  - DEATH [None]
  - BLOOD PRESSURE DECREASED [None]
